FAERS Safety Report 6833913-1 (Version None)
Quarter: 2010Q3

REPORT INFORMATION
  Report Type: 
  Country: None (occurrence: None)
  Receive Date: 20100712
  Receipt Date: 20070405
  Transmission Date: 20110219
  Serious: No
  Sender: FDA-Public Use
  Company Number: US-PFIZER INC-2007028447

PATIENT
  Sex: Male
  Weight: 98.88 kg

DRUGS (6)
  1. CHANTIX [Suspect]
     Indication: SMOKING CESSATION THERAPY
     Dates: start: 20070101
  2. LEVOTHYROXINE [Suspect]
     Indication: HYPOTHYROIDISM
     Dosage: 1 EVERY NA DAYS6 DAYS A WEEK
     Dates: start: 20061201
  3. PREVACID [Concomitant]
  4. ZETIA [Concomitant]
  5. SYNTHROID [Concomitant]
     Dates: end: 20061201
  6. WELLBUTRIN [Concomitant]

REACTIONS (1)
  - HYPOTHYROIDISM [None]
